FAERS Safety Report 18337218 (Version 6)
Quarter: 2022Q1

REPORT INFORMATION
  Report Type: Spontaneous
  Country: US (occurrence: None)
  Receive Date: 20201001
  Receipt Date: 20220111
  Transmission Date: 20220424
  Serious: Yes (Hospitalization, Other)
  Sender: FDA-Public Use
  Company Number: 2020SF25242

PATIENT
  Age: 19364 Day
  Sex: Male
  Weight: 91.6 kg

DRUGS (47)
  1. FARXIGA [Suspect]
     Active Substance: DAPAGLIFLOZIN PROPANEDIOL
     Indication: Type 2 diabetes mellitus
     Route: 048
     Dates: start: 20190214
  2. FARXIGA [Suspect]
     Active Substance: DAPAGLIFLOZIN PROPANEDIOL
     Indication: Weight decreased
     Route: 048
     Dates: start: 20190214
  3. FARXIGA [Suspect]
     Active Substance: DAPAGLIFLOZIN PROPANEDIOL
     Indication: Blood pressure decreased
     Route: 048
     Dates: start: 20190214
  4. FARXIGA [Suspect]
     Active Substance: DAPAGLIFLOZIN PROPANEDIOL
     Indication: Type 2 diabetes mellitus
     Route: 048
  5. FARXIGA [Suspect]
     Active Substance: DAPAGLIFLOZIN PROPANEDIOL
     Indication: Weight decreased
     Route: 048
  6. FARXIGA [Suspect]
     Active Substance: DAPAGLIFLOZIN PROPANEDIOL
     Indication: Blood pressure decreased
     Route: 048
  7. OMEPRAZOLE [Concomitant]
     Active Substance: OMEPRAZOLE
     Route: 048
     Dates: start: 20190301
  8. OMEPRAZOLE [Concomitant]
     Active Substance: OMEPRAZOLE
     Route: 048
     Dates: start: 20190516
  9. OMEPRAZOLE [Concomitant]
     Active Substance: OMEPRAZOLE
     Route: 048
     Dates: start: 20190806
  10. OMEPRAZOLE [Concomitant]
     Active Substance: OMEPRAZOLE
     Route: 048
     Dates: start: 20190905
  11. PRILOSEC OTC [Concomitant]
     Active Substance: OMEPRAZOLE MAGNESIUM
     Route: 048
  12. AMLODIPINE BESYLATE [Concomitant]
     Active Substance: AMLODIPINE BESYLATE
  13. JANUVIA [Concomitant]
     Active Substance: SITAGLIPTIN PHOSPHATE
  14. BETAMETHASONE\CLOTRIMAZOLE [Concomitant]
     Active Substance: BETAMETHASONE\CLOTRIMAZOLE
  15. TRULICITY [Concomitant]
     Active Substance: DULAGLUTIDE
  16. LOSARTAN [Concomitant]
     Active Substance: LOSARTAN
  17. HYDROCHLOROTHIAZIDE [Concomitant]
     Active Substance: HYDROCHLOROTHIAZIDE
  18. GLIMEPIRIDE [Concomitant]
     Active Substance: GLIMEPIRIDE
  19. CIPROFLOXACIN [Concomitant]
     Active Substance: CIPROFLOXACIN
  20. BROMPHEN/PSUEDO/DEXTRO [Concomitant]
  21. DOXYCYCLINE [Concomitant]
     Active Substance: DOXYCYCLINE
  22. CLINDAMYCIN [Concomitant]
     Active Substance: CLINDAMYCIN
  23. MUPIROCIN [Concomitant]
     Active Substance: MUPIROCIN
  24. LINEZOLID [Concomitant]
     Active Substance: LINEZOLID
  25. FLUCONAZOLE [Concomitant]
     Active Substance: FLUCONAZOLE
  26. NYSTATIN [Concomitant]
     Active Substance: NYSTATIN
  27. VITAMIN B12 [Concomitant]
     Active Substance: CYANOCOBALAMIN
  28. COZAAR [Concomitant]
     Active Substance: LOSARTAN POTASSIUM
  29. LOTRISONE [Concomitant]
     Active Substance: BETAMETHASONE DIPROPIONATE\CLOTRIMAZOLE
  30. NEURONTIN [Concomitant]
     Active Substance: GABAPENTIN
  31. APLISOL [Concomitant]
     Active Substance: TUBERCULIN PURIFIED PROTEIN DERIVATIVE
  32. VANCOMYCIN [Concomitant]
     Active Substance: VANCOMYCIN
  33. MORPHINE [Concomitant]
     Active Substance: MORPHINE
  34. LIDOCAINE [Concomitant]
     Active Substance: LIDOCAINE
  35. MEROPENEM [Concomitant]
     Active Substance: MEROPENEM
  36. HYDROCODONE BITARTRATE AND ACETAMINOPHEN [Concomitant]
     Active Substance: ACETAMINOPHEN\HYDROCODONE BITARTRATE
     Dates: start: 20190207
  37. BACLOFEN [Concomitant]
     Active Substance: BACLOFEN
     Dates: start: 20190207
  38. INVOKANA [Concomitant]
     Active Substance: CANAGLIFLOZIN
     Dates: start: 20190207
  39. GLUCOPHAGE [Concomitant]
     Active Substance: METFORMIN HYDROCHLORIDE
     Dates: start: 20190207
  40. PENICILLIN [Concomitant]
     Active Substance: PENICILLIN
     Dates: start: 20190207
  41. JARDIANCE [Concomitant]
     Active Substance: EMPAGLIFLOZIN
     Dates: start: 20190207
  42. TOPROL XL [Concomitant]
     Active Substance: METOPROLOL SUCCINATE
     Dates: start: 20190207
  43. ZOFRAN [Concomitant]
     Active Substance: ONDANSETRON HYDROCHLORIDE
  44. LOVENOX [Concomitant]
     Active Substance: ENOXAPARIN SODIUM
  45. POTASSIUM CHLORIDE [Concomitant]
     Active Substance: POTASSIUM CHLORIDE
  46. ROBAXIN [Concomitant]
     Active Substance: METHOCARBAMOL
  47. CIPROFLOXACIN [Concomitant]
     Active Substance: CIPROFLOXACIN

REACTIONS (9)
  - Scrotal abscess [Unknown]
  - Abscess limb [Unknown]
  - Groin abscess [Unknown]
  - Penile abscess [Unknown]
  - Cellulitis of male external genital organ [Unknown]
  - Abscess limb [Unknown]
  - Pain [Unknown]
  - Anal incontinence [Unknown]
  - Nerve injury [Unknown]

NARRATIVE: CASE EVENT DATE: 20190611
